FAERS Safety Report 7291126-6 (Version None)
Quarter: 2011Q1

REPORT INFORMATION
  Report Type: 
  Country: None (occurrence: None)
  Receive Date: 20110214
  Receipt Date: 20110209
  Transmission Date: 20110831
  Serious: Yes (Other)
  Sender: FDA-Public Use
  Company Number: DE-PFIZER INC-2011029758

PATIENT
  Age: 64 Year
  Sex: Female

DRUGS (3)
  1. SALMETEROL XINAFOATE [Concomitant]
     Indication: ASTHMA
     Dosage: UNK
  2. SORTIS [Suspect]
     Dosage: 10 MG, 1X/DAY
     Dates: start: 20110131
  3. FLUTICASONE PROPIONATE [Concomitant]

REACTIONS (3)
  - COUGH [None]
  - PULMONARY CONGESTION [None]
  - DYSPNOEA [None]
